FAERS Safety Report 7235357-X (Version None)
Quarter: 2011Q1

REPORT INFORMATION
  Report Type: 
  Country: None (occurrence: None)
  Receive Date: 20110120
  Receipt Date: 20110110
  Transmission Date: 20110831
  Serious: No
  Sender: FDA-Public Use
  Company Number: US-JNJFOC-20110102588

PATIENT
  Sex: Female
  Weight: 90.72 kg

DRUGS (4)
  1. TRAZODONE [Concomitant]
     Route: 048
  2. WELLBUTRIN [Concomitant]
     Route: 048
  3. INVEGA [Suspect]
     Indication: BIPOLAR DISORDER
     Route: 048
  4. VALIUM [Concomitant]
     Dosage: UP TO 4 A DAY
     Route: 048

REACTIONS (1)
  - TREATMENT NONCOMPLIANCE [None]
